FAERS Safety Report 22156412 (Version 1)
Quarter: 2023Q1

REPORT INFORMATION
  Report Type: Spontaneous
  Country: IE (occurrence: IE)
  Receive Date: 20230330
  Receipt Date: 20230330
  Transmission Date: 20230418
  Serious: Yes (Other)
  Sender: FDA-Public Use
  Company Number: None

PATIENT
  Age: 37 Year
  Sex: Female

DRUGS (30)
  1. STRATTERA [Interacting]
     Active Substance: ATOMOXETINE HYDROCHLORIDE
     Indication: Attention deficit hyperactivity disorder
     Dosage: 80 MG, DAILY
     Route: 065
     Dates: start: 20221202
  2. UTROGESTAN [Interacting]
     Active Substance: PROGESTERONE
     Indication: Gender dysphoria
     Dosage: 100 UG, DAILY
     Route: 065
     Dates: start: 20210301, end: 20221010
  3. UTROGESTAN [Interacting]
     Active Substance: PROGESTERONE
     Dosage: 100 UG, UNKNOWN
     Route: 065
     Dates: start: 20221013, end: 20221218
  4. HARTMANN [CALCIUM CHLORIDE;MAGNESIUM CHLORIDE [Concomitant]
     Indication: Product used for unknown indication
     Dates: start: 20221011, end: 20221015
  5. ACETAMINOPHEN [Concomitant]
     Active Substance: ACETAMINOPHEN
     Indication: Product used for unknown indication
  6. PANADOL [Concomitant]
     Active Substance: ACETAMINOPHEN
     Indication: Pain
     Dates: start: 20220831
  7. PANADOL [Concomitant]
     Active Substance: ACETAMINOPHEN
     Indication: Headache
  8. BETNOVATE [Concomitant]
     Active Substance: BETAMETHASONE
     Indication: Dyshidrotic eczema
     Dosage: ON THE FEET
     Dates: start: 20221122
  9. BETNOVATE [Concomitant]
     Active Substance: BETAMETHASONE
     Dosage: THIN LAYER WHEN NEEDED
     Dates: start: 20220711
  10. SYNAREL [Concomitant]
     Active Substance: NAFARELIN ACETATE
     Indication: Gender dysphoria
     Route: 045
     Dates: start: 20210303, end: 20210310
  11. TWINRIX [Concomitant]
     Active Substance: HEPATITIS A VIRUS STRAIN HM175 ANTIGEN (FORMALDEHYDE INACTIVATED)\HEPATITIS B VIRUS SUBTYPE ADW2 HBS
     Indication: Hepatitis immunisation
     Dosage: 3RD DOSE
     Dates: start: 20221208
  12. TWINRIX [Concomitant]
     Active Substance: HEPATITIS A VIRUS STRAIN HM175 ANTIGEN (FORMALDEHYDE INACTIVATED)\HEPATITIS B VIRUS SUBTYPE ADW2 HBS
     Dates: start: 20220714, end: 20220714
  13. GLYCERIN [Concomitant]
     Active Substance: GLYCERIN
     Indication: Product used for unknown indication
     Dates: start: 20221011, end: 20221015
  14. LISDEXAMFETAMINE DIMESYLATE [Concomitant]
     Active Substance: LISDEXAMFETAMINE DIMESYLATE
     Indication: Attention deficit hyperactivity disorder
     Dates: start: 20220825, end: 20220914
  15. RITALIN LA [Concomitant]
     Active Substance: METHYLPHENIDATE HYDROCHLORIDE
     Indication: Attention deficit hyperactivity disorder
     Route: 048
     Dates: start: 20221104, end: 20221105
  16. BROMAZEPAM [Concomitant]
     Active Substance: BROMAZEPAM
     Indication: Sleep disorder
     Dates: start: 20221014
  17. BECONASE HAYFEVER [Concomitant]
     Indication: Nasal disorder
  18. BECONASE HAYFEVER [Concomitant]
     Route: 045
     Dates: start: 20221013
  19. BECONASE HAYFEVER [Concomitant]
     Dosage: 2X50MCG SPRAYS PER DAY ^USUALLY^
     Route: 045
     Dates: start: 20210929, end: 20221010
  20. STRATTERA [Concomitant]
     Active Substance: ATOMOXETINE HYDROCHLORIDE
     Indication: Attention deficit hyperactivity disorder
     Dosage: 40 MG, DAILY
     Route: 065
     Dates: start: 20221106, end: 202212
  21. STRATTERA [Concomitant]
     Active Substance: ATOMOXETINE HYDROCHLORIDE
  22. LIDOGALEN [Concomitant]
     Indication: Pain
     Dosage: THIN LAYER ON BEARD AREA
     Dates: start: 20220909, end: 20220909
  23. GARDASIL 9 [Concomitant]
     Active Substance: HUMAN PAPILLOMAVIRUS TYPE 11 L1 CAPSID PROTEIN ANTIGEN\HUMAN PAPILLOMAVIRUS TYPE 16 L1 CAPSID PROTEI
     Indication: Human papilloma virus immunisation
     Dosage: 3RD DOSE
     Dates: start: 20221208
  24. GARDASIL 9 [Concomitant]
     Active Substance: HUMAN PAPILLOMAVIRUS TYPE 11 L1 CAPSID PROTEIN ANTIGEN\HUMAN PAPILLOMAVIRUS TYPE 16 L1 CAPSID PROTEI
     Dosage: HPV SECOND SHOT
     Route: 030
     Dates: start: 20220714
  25. IBUPROFEN [Concomitant]
     Active Substance: IBUPROFEN
     Indication: Pain
     Dosage: 400/200MCG
     Dates: start: 20221024, end: 20221027
  26. COMIRNATY [Concomitant]
     Active Substance: TOZINAMERAN
     Indication: COVID-19 immunisation
     Dosage: 2ND BOOSTER (4TH DOSE)
     Dates: start: 20221230, end: 20221230
  27. ESTRADIOL [Concomitant]
     Active Substance: ESTRADIOL
     Indication: Gender dysphoria
     Dosage: 200 UG, UNKNOWN
     Dates: start: 20220603, end: 20221010
  28. ESTRADIOL [Concomitant]
     Active Substance: ESTRADIOL
     Dosage: UNK
     Dates: start: 20221013
  29. ESTRADIOL [Concomitant]
     Active Substance: ESTRADIOL
     Dosage: 200 UG, OTHER, TWICE A WEEK
  30. INFLUENZA VIRUS VACCINE [Concomitant]
     Active Substance: INFLUENZA VIRUS VACCINE
     Indication: Influenza immunisation
     Dosage: GIVEN IN THE LEFT ARM, THE PATIENT IS RIGHT HANDED
     Dates: start: 20221108, end: 20221108

REACTIONS (11)
  - Haematochezia [Recovered/Resolved]
  - Constipation [Recovering/Resolving]
  - Insomnia [Recovering/Resolving]
  - Drug interaction [Recovered/Resolved]
  - Blood pressure decreased [Recovered/Resolved]
  - Tachycardia [Recovered/Resolved]
  - Dry mouth [Recovered/Resolved]
  - Asthenia [Recovered/Resolved]
  - Depressed mood [Recovered/Resolved]
  - Palpitations [Recovered/Resolved]
  - Drug effect less than expected [Recovered/Resolved]

NARRATIVE: CASE EVENT DATE: 20221201
